FAERS Safety Report 24778101 (Version 1)
Quarter: 2024Q4

REPORT INFORMATION
  Report Type: Spontaneous
  Country: ES (occurrence: ES)
  Receive Date: 20241226
  Receipt Date: 20241226
  Transmission Date: 20250114
  Serious: Yes (Hospitalization)
  Sender: PFIZER
  Company Number: None

PATIENT
  Age: 73 Year
  Sex: Male
  Weight: 69 kg

DRUGS (3)
  1. CARBOPLATIN [Suspect]
     Active Substance: CARBOPLATIN
     Indication: Lung neoplasm malignant
     Dosage: 3RD CYCLE 502 MG (502MG/TOTAL).  11/07/2024 1ST CYCLE 502 MG (502MG/TOTAL).
     Route: 042
     Dates: start: 20240711, end: 20240828
  2. KEYTRUDA [Suspect]
     Active Substance: PEMBROLIZUMAB
     Indication: Lung neoplasm malignant
     Dosage: 3RD CYCLE 200 MG (200MG/TOTAL).  11/07/2024 1ST CYCLE 200 MG (200MG/TOTAL).
     Route: 042
     Dates: start: 20240711, end: 20240828
  3. PEMETREXED [Suspect]
     Active Substance: PEMETREXED
     Indication: Lung neoplasm malignant
     Dosage: 3RD CYCLE 885 MG (500MG/M2).  11/07/2024 1ST CYCLE 885 MG (500MG/M2).
     Route: 042
     Dates: start: 20240711, end: 20240828

REACTIONS (2)
  - Tubulointerstitial nephritis [Recovered/Resolved]
  - Acute kidney injury [Recovering/Resolving]

NARRATIVE: CASE EVENT DATE: 20240918
